FAERS Safety Report 9220654 (Version 1)
Quarter: 2013Q2

REPORT INFORMATION
  Report Type: Spontaneous
  Country: US (occurrence: US)
  Receive Date: 20130409
  Receipt Date: 20130409
  Transmission Date: 20140414
  Serious: Yes (Other)
  Sender: FDA-Public Use
  Company Number: CHPA2013US005889

PATIENT
  Age: 73 Year
  Sex: Female

DRUGS (1)
  1. BENEFIBER UNKNOWN [Suspect]
     Indication: BOWEL MOVEMENT IRREGULARITY
     Dosage: UNK, UNK
     Route: 048

REACTIONS (4)
  - Ulcer [Recovered/Resolved]
  - Helicobacter gastritis [Recovered/Resolved]
  - Diarrhoea [Recovered/Resolved]
  - Off label use [Unknown]
